FAERS Safety Report 11005414 (Version 1)
Quarter: 2015Q2

REPORT INFORMATION
  Report Type: Spontaneous
  Country: US (occurrence: US)
  Receive Date: 20150409
  Receipt Date: 20150409
  Transmission Date: 20150821
  Serious: No
  Sender: FDA-Public Use
  Company Number: US-ALLERGAN-1423084US

PATIENT
  Age: 85 Year
  Sex: Female

DRUGS (9)
  1. BREWER^S YEAST [Concomitant]
  2. VITAMIN C [Concomitant]
     Active Substance: ASCORBIC ACID
  3. LISINOPRIL. [Concomitant]
     Active Substance: LISINOPRIL
     Indication: HYPERTENSION
  4. CITRACAL [Concomitant]
     Active Substance: CALCIUM CITRATE
  5. COD LIVER OIL [Concomitant]
     Active Substance: COD LIVER OIL
  6. VITAMIN B12 [Concomitant]
     Active Substance: CYANOCOBALAMIN
  7. CENTRUM [Concomitant]
     Active Substance: VITAMINS
  8. CINNAMON. [Concomitant]
     Active Substance: CINNAMON
  9. LUMIGAN [Suspect]
     Active Substance: BIMATOPROST
     Indication: GLAUCOMA
     Dosage: 2 GTT, QHS
     Route: 047
     Dates: start: 20141016

REACTIONS (3)
  - Vision blurred [Recovered/Resolved]
  - Ocular discomfort [Recovering/Resolving]
  - Lacrimation increased [Not Recovered/Not Resolved]

NARRATIVE: CASE EVENT DATE: 20141031
